FAERS Safety Report 5007437-0 (Version None)
Quarter: 2006Q2

REPORT INFORMATION
  Report Type: 
  Country: None (occurrence: None)
  Receive Date: 20060519
  Receipt Date: 20060519
  Transmission Date: 20061013
  Serious: Yes (Life-Threatening, Hospitalization)
  Sender: FDA-Public Use
  Company Number: None

PATIENT
  Weight: 81.6475 kg

DRUGS (2)
  1. PEG-INTRON [Suspect]
     Indication: HEPATITIS C
     Dosage: 150 MCG QWK SQ
     Route: 058
     Dates: start: 20050901, end: 20060202
  2. RIBAVIRIN [Suspect]
     Indication: HEPATITIS C
     Dosage: RIBIVIRIN QD PO
     Route: 048
     Dates: start: 20050901, end: 20060202

REACTIONS (1)
  - CEREBROVASCULAR ACCIDENT [None]
